FAERS Safety Report 23110735 (Version 1)
Quarter: 2023Q4

REPORT INFORMATION
  Report Type: Spontaneous
  Country: US (occurrence: None)
  Receive Date: 20231024
  Receipt Date: 20231024
  Transmission Date: 20240109
  Serious: Yes (Life-Threatening)
  Sender: FDA-Public Use
  Company Number: None

PATIENT
  Age: 18 Year
  Sex: Female
  Weight: 61.4 kg

DRUGS (7)
  1. VEDOLIZUMAB [Suspect]
     Active Substance: VEDOLIZUMAB
     Indication: Type 1 diabetes mellitus
     Dates: start: 20230711, end: 20230818
  2. LANTUS [Concomitant]
  3. HUMALOG [Concomitant]
  4. LUTERA ORAL CONTRACEPTIVE PILL [Concomitant]
  5. SERTRALINE [Concomitant]
  6. PROBIOTICS [Concomitant]
  7. CALCIUM [Concomitant]

REACTIONS (4)
  - Seizure [None]
  - Hypoglycaemia [None]
  - Memory impairment [None]
  - Therapy cessation [None]

NARRATIVE: CASE EVENT DATE: 20231022
